FAERS Safety Report 6428656-2 (Version None)
Quarter: 2009Q4

REPORT INFORMATION
  Report Type: 
  Country: None (occurrence: None)
  Receive Date: 20091105
  Receipt Date: 20091027
  Transmission Date: 20100525
  Serious: Yes (Disabling, Other)
  Sender: FDA-Public Use
  Company Number: GB-PFIZER INC-2008040090

PATIENT
  Age: 61 Year
  Sex: Male
  Weight: 76 kg

DRUGS (11)
  1. CHAMPIX [Suspect]
     Indication: SMOKING CESSATION THERAPY
     Dosage: 1 MG, UNK
     Route: 048
     Dates: start: 20080121, end: 20080413
  2. CHAMPIX [Suspect]
     Dosage: 1 MG, UNK
     Dates: start: 20080204, end: 20080413
  3. ALLOPURINOL [Concomitant]
     Indication: GOUT
     Route: 048
     Dates: start: 20020318
  4. BENDROFLUAZIDE [Concomitant]
     Indication: HYPERTENSION
  5. CO-DYDRAMOL [Concomitant]
     Dosage: 2 DF, AS NEEDED
  6. PENICILLAMINE [Concomitant]
     Indication: RHEUMATOID ARTHRITIS
     Route: 048
     Dates: start: 20071102
  7. PREDNISOLONE [Concomitant]
     Indication: RHEUMATOID ARTHRITIS
     Route: 048
     Dates: start: 20050805
  8. QUININE [Concomitant]
     Indication: MUSCLE SPASMS
     Dates: start: 20080213
  9. RAMIPRIL [Concomitant]
     Indication: HYPERTENSION
     Route: 048
  10. SERETIDE [Concomitant]
     Indication: ASTHMA
     Dosage: UNK
  11. VENLAFAXINE [Concomitant]
     Indication: DEPRESSION
     Route: 048
     Dates: start: 20080213

REACTIONS (2)
  - DEPRESSION [None]
  - SELF-INJURIOUS IDEATION [None]
